FAERS Safety Report 4883177-3 (Version None)
Quarter: 2006Q1

REPORT INFORMATION
  Report Type: 
  Country: None (occurrence: None)
  Receive Date: 20060117
  Receipt Date: 20060117
  Transmission Date: 20060701
  Serious: Yes (Life-Threatening, Hospitalization)
  Sender: FDA-Public Use
  Company Number: None

PATIENT
  Age: 70 Year
  Sex: Female

DRUGS (11)
  1. FLOVENT HFA [Suspect]
     Indication: ASTHMA
     Dosage: TWO PUFFS EVERY MORNING
     Dates: start: 20050714
  2. KLONOPIN [Concomitant]
  3. VYTORIN [Concomitant]
  4. ESGIC-PLUS [Concomitant]
  5. REPLAX [Concomitant]
  6. SYNTHROID [Concomitant]
  7. INDERAL [Concomitant]
  8. FLONASE [Concomitant]
  9. PAXIL [Concomitant]
  10. ESTRADIOL INJ [Concomitant]
  11. ACIPHEX [Concomitant]

REACTIONS (2)
  - ASTHMA [None]
  - CONDITION AGGRAVATED [None]
